FAERS Safety Report 14642118 (Version 1)
Quarter: 2018Q1

REPORT INFORMATION
  Report Type: Spontaneous
  Country: QA (occurrence: QA)
  Receive Date: 20180315
  Receipt Date: 20180315
  Transmission Date: 20180509
  Serious: Yes (Hospitalization)
  Sender: FDA-Public Use
  Company Number: None

PATIENT
  Age: 60 Year
  Sex: Male
  Weight: 70 kg

DRUGS (3)
  1. DEXMEDETOMIDINE. [Suspect]
     Active Substance: DEXMEDETOMIDINE
     Indication: SEDATION
     Dosage: ?          OTHER FREQUENCY:CONTINUOUS INFUSIO;?
     Route: 041
     Dates: start: 20160301, end: 20160414
  2. ANIDULAFUNGIN [Suspect]
     Active Substance: ANIDULAFUNGIN
     Indication: SYSTEMIC CANDIDA
     Route: 040
     Dates: start: 20160301, end: 20160410
  3. QUETIAPENE [Concomitant]

REACTIONS (5)
  - Cholestasis [None]
  - Sepsis [None]
  - Multiple organ dysfunction syndrome [None]
  - Necrotising fasciitis [None]
  - Hepatic enzyme increased [None]

NARRATIVE: CASE EVENT DATE: 20160404
